FAERS Safety Report 8824096 (Version 2)
Quarter: 2012Q4

REPORT INFORMATION
  Report Type: 
  Country: US (occurrence: US)
  Receive Date: 20121003
  Receipt Date: 20121009
  Transmission Date: 20130627
  Serious: Yes (Other)
  Sender: FDA-Public Use
  Company Number: US-PFIZER INC-2012204001

PATIENT
  Sex: Female

DRUGS (2)
  1. PREMARIN [Suspect]
     Dosage: UNK
     Route: 067
  2. PREMARIN [Suspect]
     Dosage: UNK
     Route: 067

REACTIONS (2)
  - Inappropriate schedule of drug administration [Unknown]
  - Vaginal haemorrhage [Recovered/Resolved]
